FAERS Safety Report 20340102 (Version 2)
Quarter: 2022Q1

REPORT INFORMATION
  Report Type: Spontaneous
  Country: US (occurrence: US)
  Receive Date: 20220117
  Receipt Date: 20220121
  Transmission Date: 20220423
  Serious: No
  Sender: FDA-Public Use
  Company Number: US-TEVA-2022-US-1996848

PATIENT
  Age: 37 Year
  Sex: Male

DRUGS (2)
  1. AJOVY [Suspect]
     Active Substance: FREMANEZUMAB-VFRM
     Route: 065
  2. AJOVY [Suspect]
     Active Substance: FREMANEZUMAB-VFRM
     Route: 065
     Dates: start: 20211230

REACTIONS (9)
  - Injection site mass [Not Recovered/Not Resolved]
  - Injection site induration [Not Recovered/Not Resolved]
  - Incorrect drug administration rate [Unknown]
  - Subcutaneous drug absorption impaired [Unknown]
  - Device leakage [Unknown]
  - Incorrect dose administered by device [Unknown]
  - Accidental exposure to product [Unknown]
  - Medical device site scar [Unknown]
  - Device issue [Unknown]

NARRATIVE: CASE EVENT DATE: 20211230
